FAERS Safety Report 17299266 (Version 2)
Quarter: 2020Q1

REPORT INFORMATION
  Report Type: Report from Study
  Country: None (occurrence: US)
  Receive Date: 20200122
  Receipt Date: 20200306
  Transmission Date: 20200409
  Serious: Yes (Other)
  Sender: FDA-Public Use
  Company Number: US-ABBVIE-20K-163-3234897-00

PATIENT
  Age: 70 Year
  Sex: Female

DRUGS (3)
  1. HUMIRA [Suspect]
     Active Substance: ADALIMUMAB
     Indication: PSORIASIS
     Dosage: CITRATE FREE
     Route: 058
     Dates: start: 20191215, end: 202001
  2. HUMIRA [Suspect]
     Active Substance: ADALIMUMAB
     Dosage: CITRATE FREE
     Route: 058
     Dates: start: 20200205
  3. NIACIN. [Suspect]
     Active Substance: NIACIN
     Indication: RAYNAUD^S PHENOMENON
     Route: 048
     Dates: start: 201908, end: 202001

REACTIONS (15)
  - Loss of consciousness [Recovered/Resolved]
  - Head injury [Unknown]
  - Joint injury [Recovered/Resolved]
  - Nausea [Unknown]
  - Flushing [Recovered/Resolved]
  - Joint injury [Unknown]
  - Head injury [Not Recovered/Not Resolved]
  - Tremor [Recovered/Resolved]
  - Feeling hot [Unknown]
  - Hot flush [Not Recovered/Not Resolved]
  - Blood pressure increased [Recovered/Resolved]
  - Blood pressure decreased [Recovered/Resolved]
  - Hyperhidrosis [Unknown]
  - Limb injury [Recovered/Resolved]
  - Dizziness [Recovered/Resolved]

NARRATIVE: CASE EVENT DATE: 202001
